FAERS Safety Report 4405599-7 (Version None)
Quarter: 2004Q3

REPORT INFORMATION
  Report Type: 
  Country: None (occurrence: None)
  Receive Date: 20040723
  Receipt Date: 20031013
  Transmission Date: 20050211
  Serious: No
  Sender: FDA-Public Use
  Company Number: US-GLAXOSMITHKLINE-A0430014A

PATIENT
  Age: 52 Year
  Sex: Female

DRUGS (4)
  1. AVANDIA [Suspect]
     Dosage: 8MG PER DAY
     Route: 048
  2. GLIPIZIDE [Concomitant]
  3. NORVASC [Concomitant]
  4. LISINOPRIL [Concomitant]

REACTIONS (2)
  - DIARRHOEA [None]
  - HYPERGLYCAEMIA [None]
